FAERS Safety Report 10066890 (Version 3)
Quarter: 2014Q2

REPORT INFORMATION
  Report Type: Report from Study
  Country: CA (occurrence: CA)
  Receive Date: 20140408
  Receipt Date: 20140414
  Transmission Date: 20141212
  Serious: Yes (Hospitalization)
  Sender: FDA-Public Use
  Company Number: CA-UCBSA-106994

PATIENT
  Age: 32 Year
  Sex: Female
  Weight: 47.72 kg

DRUGS (5)
  1. CIMZIA [Suspect]
     Indication: RHEUMATOID ARTHRITIS
     Route: 058
     Dates: start: 20120808
  2. CIMZIA [Suspect]
     Indication: RHEUMATOID ARTHRITIS
     Route: 058
     Dates: start: 20120626, end: 20120724
  3. PLAQUENIL [Concomitant]
     Indication: RHEUMATOID ARTHRITIS
     Route: 048
     Dates: start: 200812
  4. NAPROSEN [Concomitant]
     Indication: RHEUMATOID ARTHRITIS
     Route: 048
  5. NEXIUM [Concomitant]
     Route: 048

REACTIONS (3)
  - Kidney infection [Unknown]
  - Anaemia [Recovering/Resolving]
  - Pharyngitis streptococcal [Recovered/Resolved]
